FAERS Safety Report 9980719 (Version 1)
Quarter: 2014Q1

REPORT INFORMATION
  Report Type: Spontaneous
  Country: US (occurrence: US)
  Receive Date: 20140307
  Receipt Date: 20140307
  Transmission Date: 20141002
  Serious: Yes (Other)
  Sender: FDA-Public Use
  Company Number: US-BIOGENIDEC-2014BI018288

PATIENT
  Age: 32 Year
  Sex: Female

DRUGS (5)
  1. TECFIDERA [Suspect]
     Indication: MULTIPLE SCLEROSIS
     Route: 048
     Dates: start: 20131220
  2. WELLBUTRIN [Concomitant]
  3. VITAMIN D [Concomitant]
  4. IBUPROFEN [Concomitant]
  5. VITAMIN C [Concomitant]

REACTIONS (7)
  - Complex partial seizures [Unknown]
  - Balance disorder [Unknown]
  - Abdominal discomfort [Unknown]
  - Diarrhoea [Unknown]
  - Nausea [Unknown]
  - Drug interaction [Unknown]
  - Insomnia [Unknown]
